FAERS Safety Report 8123754-X (Version None)
Quarter: 2012Q1

REPORT INFORMATION
  Report Type: 
  Country: None (occurrence: None)
  Receive Date: 20120208
  Receipt Date: 20120201
  Transmission Date: 20120608
  Serious: Yes (Hospitalization, Disabling)
  Sender: FDA-Public Use
  Company Number: US-MERCK-1108USA01573

PATIENT
  Age: 65 Year
  Sex: Female
  Weight: 63 kg

DRUGS (4)
  1. FOSAMAX [Suspect]
     Route: 048
  2. FOSAMAX [Suspect]
     Indication: OSTEOPOROSIS
     Route: 048
     Dates: start: 19980101, end: 20080101
  3. FOSAMAX [Suspect]
     Route: 048
     Dates: start: 19951101
  4. FOSAMAX [Suspect]
     Route: 048
     Dates: start: 19970530, end: 20000101

REACTIONS (42)
  - CARDIOVASCULAR DISORDER [None]
  - GAIT DISTURBANCE [None]
  - INCORRECT DOSE ADMINISTERED [None]
  - RETINAL DETACHMENT [None]
  - TINNITUS [None]
  - LUNG DISORDER [None]
  - INSOMNIA [None]
  - HYPERTENSION [None]
  - TOOTH DISORDER [None]
  - HYPERTONIC BLADDER [None]
  - OSTEOARTHRITIS [None]
  - CHRONIC OBSTRUCTIVE PULMONARY DISEASE [None]
  - MUSCULOSKELETAL DISCOMFORT [None]
  - GINGIVAL DISORDER [None]
  - RENAL ARTERY STENOSIS [None]
  - POLYARTHRITIS [None]
  - MITRAL VALVE INCOMPETENCE [None]
  - CONSTIPATION [None]
  - FEMUR FRACTURE [None]
  - SPINAL DISORDER [None]
  - PERIPHERAL ARTERIAL OCCLUSIVE DISEASE [None]
  - PARKINSON'S DISEASE [None]
  - BLOOD CHOLESTEROL INCREASED [None]
  - FALL [None]
  - ILIUM FRACTURE [None]
  - CEREBRAL SMALL VESSEL ISCHAEMIC DISEASE [None]
  - INAPPROPRIATE SCHEDULE OF DRUG ADMINISTRATION [None]
  - SCIATICA [None]
  - PELVIC FRACTURE [None]
  - DRUG INEFFECTIVE [None]
  - ANXIETY DISORDER [None]
  - VITAMIN B12 DEFICIENCY [None]
  - ASPARTATE AMINOTRANSFERASE INCREASED [None]
  - BRONCHITIS [None]
  - NECK PAIN [None]
  - ILIAC ARTERY STENOSIS [None]
  - GLAUCOMA [None]
  - PUBIS FRACTURE [None]
  - INTERMITTENT CLAUDICATION [None]
  - HYPERLIPIDAEMIA [None]
  - GASTROOESOPHAGEAL REFLUX DISEASE [None]
  - ARTHRALGIA [None]
